FAERS Safety Report 6794114-9 (Version None)
Quarter: 2010Q2

REPORT INFORMATION
  Report Type: 
  Country: None (occurrence: None)
  Receive Date: 20100624
  Receipt Date: 20091020
  Transmission Date: 20101027
  Serious: No
  Sender: FDA-Public Use
  Company Number: US-PFIZER INC-2009254347

PATIENT
  Sex: Female
  Weight: 78.017 kg

DRUGS (4)
  1. RELPAX [Suspect]
     Indication: HEADACHE
     Dosage: 40 MG, 1X/DAY
     Dates: start: 20090807
  2. IBUPROFEN [Suspect]
     Indication: HEADACHE
     Dosage: 800 MG, 3X/DAY
  3. LIPITOR [Concomitant]
     Indication: BLOOD CHOLESTEROL ABNORMAL
     Dosage: UNK
  4. IMITREX [Concomitant]
     Dosage: UNK

REACTIONS (2)
  - DRUG INEFFECTIVE [None]
  - STRESS [None]
